FAERS Safety Report 7719728-0 (Version None)
Quarter: 2011Q3

REPORT INFORMATION
  Report Type: 
  Country: None (occurrence: None)
  Receive Date: 20110831
  Receipt Date: 20110823
  Transmission Date: 20111222
  Serious: Yes (Other)
  Sender: FDA-Public Use
  Company Number: KR-B.I. PHARMACEUTICALS,INC./RIDGEFIELD-2011-DE-04856GL

PATIENT
  Age: 59 Year
  Sex: Male

DRUGS (1)
  1. TELMISARTAN [Suspect]
     Indication: HYPERTENSION
     Route: 065

REACTIONS (3)
  - DIZZINESS [None]
  - SYNCOPE [None]
  - SEMEN VOLUME DECREASED [None]
